FAERS Safety Report 22648127 (Version 1)
Quarter: 2023Q2

REPORT INFORMATION
  Report Type: Report from Study
  Country: US (occurrence: US)
  Receive Date: 20230628
  Receipt Date: 20230628
  Transmission Date: 20230721
  Serious: No
  Sender: FDA-Public Use
  Company Number: US-002147023-NVSC2023US146816

PATIENT
  Sex: Female

DRUGS (1)
  1. GLEEVEC [Suspect]
     Active Substance: IMATINIB MESYLATE
     Indication: Chronic myeloid leukaemia
     Dosage: UNK
     Route: 065
     Dates: start: 200804, end: 2015

REACTIONS (12)
  - Skin discolouration [Unknown]
  - Brain fog [Unknown]
  - Alopecia [Unknown]
  - Bone pain [Unknown]
  - Muscle spasms [Unknown]
  - Abdominal distension [Unknown]
  - Fatigue [Unknown]
  - Nausea [Unknown]
  - Pyrexia [Unknown]
  - Eye irritation [Unknown]
  - Depression [Unknown]
  - Tinnitus [Unknown]
